FAERS Safety Report 20919278 (Version 1)
Quarter: 2022Q2

REPORT INFORMATION
  Report Type: Spontaneous
  Country: IT (occurrence: IT)
  Receive Date: 20220606
  Receipt Date: 20220606
  Transmission Date: 20220721
  Serious: Yes (Other)
  Sender: FDA-Public Use
  Company Number: IT-UCBSA-2022027158

PATIENT
  Age: 13 Year
  Sex: Female

DRUGS (6)
  1. LEVETIRACETAM [Suspect]
     Active Substance: LEVETIRACETAM
     Indication: Status epilepticus
     Dosage: 30 MILLIGRAM/KILOGRAM
     Route: 042
  2. CLOBAZAM [Concomitant]
     Active Substance: CLOBAZAM
     Indication: Seizure
     Dosage: 0.25 MILLIGRAM/KILOGRAM, QD (0.25 MILLIGRAM/KILOGRAM/DAY)
  3. CEFTRIAXONE [Concomitant]
     Active Substance: CEFTRIAXONE
     Indication: Encephalitis
     Dosage: 2 GRAM, QD (2 GRAM PER DAY)
     Route: 042
  4. MIDAZOLAM [Concomitant]
     Active Substance: MIDAZOLAM
     Indication: Status epilepticus
     Dosage: UNK (UNKNOWN DOSE)
     Route: 042
  5. ACYCLOVIR [Concomitant]
     Active Substance: ACYCLOVIR
     Indication: Encephalitis
     Dosage: 30 MILLIGRAM/KILOGRAM, QD (30 MILLIGRAM/KILOGRAM/DAY)
  6. PROPOFOL [Concomitant]
     Active Substance: PROPOFOL
     Indication: Status epilepticus
     Dosage: UNK (UNKNOWN DOSE)

REACTIONS (3)
  - Seizure [Unknown]
  - Off label use [Unknown]
  - Medication error [Unknown]
